FAERS Safety Report 16284254 (Version 1)
Quarter: 2019Q2

REPORT INFORMATION
  Report Type: Report from Study
  Country: None (occurrence: US)
  Receive Date: 20190508
  Receipt Date: 20190508
  Transmission Date: 20190711
  Serious: Yes (Hospitalization, Other)
  Sender: FDA-Public Use
  Company Number: US-ABBVIE-19S-163-2768935-00

PATIENT
  Sex: Male

DRUGS (5)
  1. SYNTHROID [Suspect]
     Active Substance: LEVOTHYROXINE SODIUM
     Indication: HYPOTHYROIDISM
     Dosage: DURATION OF MEDICATION WAS 2 MONTH
     Route: 058
  2. COUMADIN [Suspect]
     Active Substance: WARFARIN SODIUM
     Indication: PRODUCT USED FOR UNKNOWN INDICATION
     Route: 065
  3. PLAVIX [Suspect]
     Active Substance: CLOPIDOGREL BISULFATE
     Indication: PRODUCT USED FOR UNKNOWN INDICATION
     Route: 048
  4. LEVOTHYROXINE. [Suspect]
     Active Substance: LEVOTHYROXINE
     Indication: PRODUCT USED FOR UNKNOWN INDICATION
     Route: 048
  5. ENTRESTO [Suspect]
     Active Substance: SACUBITRIL\VALSARTAN
     Indication: PRODUCT USED FOR UNKNOWN INDICATION
     Route: 065

REACTIONS (14)
  - Arteriosclerosis [Unknown]
  - Small intestinal haemorrhage [Unknown]
  - Basal cell carcinoma [Unknown]
  - Nephrocalcinosis [Unknown]
  - Squamous cell carcinoma of skin [Unknown]
  - Haemoglobin decreased [Unknown]
  - Heart rate abnormal [Unknown]
  - Internal haemorrhage [Unknown]
  - Renal disorder [Unknown]
  - Cholelithiasis [Unknown]
  - Hepatic calcification [Unknown]
  - Skin cancer [Unknown]
  - Dysuria [Unknown]
  - Dyspnoea [Not Recovered/Not Resolved]

NARRATIVE: CASE EVENT DATE: 2013
